FAERS Safety Report 7009970-9 (Version None)
Quarter: 2010Q3

REPORT INFORMATION
  Report Type: 
  Country: None (occurrence: None)
  Receive Date: 20100923
  Receipt Date: 20100910
  Transmission Date: 20110219
  Serious: Yes (Congenital Anomaly)
  Sender: FDA-Public Use
  Company Number: NO-WATSON-2010-12594

PATIENT

DRUGS (3)
  1. LEVETIRACETAM [Suspect]
     Indication: EPILEPSY
     Dosage: EXPOSURE IN 2ND TRIMESTER
     Route: 064
  2. TOPIRAMATE [Suspect]
     Indication: EPILEPSY
     Dosage: 300 MG, DAILY IN 1ST AND 2ND TRIMESTER
     Route: 064
  3. VALPROIC ACID [Suspect]
     Indication: PRODUCT USED FOR UNKNOWN INDICATION
     Dosage: EXPOSURE IN 1ST AND 2ND TRIMESTER
     Route: 064

REACTIONS (1)
  - PATENT DUCTUS ARTERIOSUS [None]
